FAERS Safety Report 23282518 (Version 1)
Quarter: 2023Q4

REPORT INFORMATION
  Report Type: Spontaneous
  Country: US (occurrence: US)
  Receive Date: 20231211
  Receipt Date: 20231211
  Transmission Date: 20240109
  Serious: No
  Sender: FDA-Public Use
  Company Number: US-GALDERMA-US2023017238

PATIENT

DRUGS (1)
  1. DIFFERIN GEL [Suspect]
     Active Substance: ADAPALENE
     Indication: Rosacea
     Dosage: 1 DOSAGE FORM
     Route: 061

REACTIONS (2)
  - Drug effective for unapproved indication [Recovered/Resolved]
  - Intentional product misuse [Recovered/Resolved]
